FAERS Safety Report 25992898 (Version 1)
Quarter: 2025Q4

REPORT INFORMATION
  Report Type: Spontaneous
  Country: ZA (occurrence: ZA)
  Receive Date: 20251103
  Receipt Date: 20251103
  Transmission Date: 20260117
  Serious: Yes (Death)
  Sender: CSL BEHRING
  Company Number: ZA-ROCHE-10000418397

PATIENT
  Age: 64 Year
  Sex: Male

DRUGS (1)
  1. MIRCERA [Suspect]
     Active Substance: METHOXY POLYETHYLENE GLYCOL-EPOETIN BETA
     Indication: Product used for unknown indication
     Dosage: 200 ?G
     Route: 065

REACTIONS (9)
  - Death [Fatal]
  - Haemoglobin decreased [Unknown]
  - Blood iron decreased [Unknown]
  - Transferrin decreased [Unknown]
  - Blood urea increased [Unknown]
  - Blood calcium decreased [Unknown]
  - Blood phosphorus decreased [Unknown]
  - Blood albumin decreased [Unknown]
  - Transferrin saturation decreased [Unknown]

NARRATIVE: CASE EVENT DATE: 20250901
